FAERS Safety Report 17621603 (Version 1)
Quarter: 2020Q2

REPORT INFORMATION
  Report Type: Spontaneous
  Country: US (occurrence: US)
  Receive Date: 20200402
  Receipt Date: 20200402
  Transmission Date: 20200713
  Serious: Yes (Other)
  Sender: FDA-Public Use
  Company Number: None

PATIENT
  Age: 41 Year
  Sex: Male
  Weight: 74.25 kg

DRUGS (1)
  1. LEVETIRACETAM. [Suspect]
     Active Substance: LEVETIRACETAM
     Indication: SEIZURE
     Route: 048
     Dates: start: 20150901

REACTIONS (17)
  - Gingival bleeding [None]
  - Depression [None]
  - Apathy [None]
  - Fatigue [None]
  - Erectile dysfunction [None]
  - Aggression [None]
  - Mood swings [None]
  - Personality disorder [None]
  - Drug monitoring procedure not performed [None]
  - Anxiety [None]
  - Emotional poverty [None]
  - Judgement impaired [None]
  - Muscular weakness [None]
  - Loss of libido [None]
  - Amnesia [None]
  - Irritability [None]
  - Agitation [None]

NARRATIVE: CASE EVENT DATE: 20200401
